FAERS Safety Report 12072888 (Version 2)
Quarter: 2016Q1

REPORT INFORMATION
  Report Type: Spontaneous
  Country: US (occurrence: US)
  Receive Date: 20160212
  Receipt Date: 20160315
  Transmission Date: 20160526
  Serious: No
  Sender: FDA-Public Use
  Company Number: US-JNJFOC-20160210083

PATIENT
  Age: 54 Year
  Sex: Female
  Weight: 72.58 kg

DRUGS (4)
  1. FENTANYL TRANSDERMAL SYSTEM [Suspect]
     Active Substance: FENTANYL
     Indication: PAIN
     Route: 062
     Dates: start: 2015, end: 201601
  2. FENTANYL TRANSDERMAL SYSTEM [Suspect]
     Active Substance: FENTANYL
     Indication: PAIN
     Route: 062
     Dates: start: 2015, end: 2015
  3. FENTANYL TRANSDERMAL SYSTEM [Suspect]
     Active Substance: FENTANYL
     Indication: PAIN
     Route: 062
     Dates: start: 201602
  4. FENTANYL TRANSDERMAL SYSTEM [Suspect]
     Active Substance: FENTANYL
     Indication: PAIN
     Route: 062
     Dates: start: 2015, end: 2015

REACTIONS (4)
  - Inappropriate schedule of drug administration [Unknown]
  - Inadequate analgesia [Not Recovered/Not Resolved]
  - Wrong technique in product usage process [Unknown]
  - Product quality issue [Unknown]

NARRATIVE: CASE EVENT DATE: 201602
